FAERS Safety Report 23960656 (Version 2)
Quarter: 2024Q3

REPORT INFORMATION
  Report Type: Spontaneous
  Country: DE (occurrence: DE)
  Receive Date: 20240611
  Receipt Date: 20240702
  Transmission Date: 20241016
  Serious: Yes (Hospitalization, Other)
  Sender: Thea Pharma
  Company Number: None

PATIENT
  Sex: Female
  Weight: 63 kg

DRUGS (4)
  1. LATANOPROST [Suspect]
     Active Substance: LATANOPROST
     Indication: Glaucoma
     Dosage: 0-0-0-1
     Dates: start: 2023
  2. DORZOLAMIDE HYDROCHLORIDE [Suspect]
     Active Substance: DORZOLAMIDE HYDROCHLORIDE
     Indication: Glaucoma
     Dosage: TAGESDOSIS 3X1 - MAX.1X1
     Dates: start: 2023
  3. LATANOPROST\NETARSUDIL MESYLATE [Suspect]
     Active Substance: LATANOPROST\NETARSUDIL MESYLATE
     Indication: Glaucoma
     Dosage: 1-0-0
  4. Metroprololsuccinat 47,5 mg [Concomitant]
     Dosage: 1-0-1

REACTIONS (7)
  - Palpitations [Unknown]
  - Insomnia [Unknown]
  - Heart rate increased [Unknown]
  - Panic attack [Unknown]
  - Blood pressure decreased [Unknown]
  - Nausea [Recovered/Resolved]
  - Arrhythmia [Recovered/Resolved]
